FAERS Safety Report 8092330-X (Version None)
Quarter: 2012Q1

REPORT INFORMATION
  Report Type: 
  Country: None (occurrence: None)
  Receive Date: 20120128
  Receipt Date: 20110824
  Transmission Date: 20120608
  Serious: No
  Sender: FDA-Public Use
  Company Number: US-ABBOTT-11P-163-0849045-00

PATIENT
  Age: 56 Year
  Sex: Female

DRUGS (7)
  1. MULTI-VITAMIN [Concomitant]
     Indication: PRODUCT USED FOR UNKNOWN INDICATION
  2. GENERIC ABILIFY [Concomitant]
     Indication: PRODUCT USED FOR UNKNOWN INDICATION
  3. FISH OIL [Concomitant]
     Indication: PRODUCT USED FOR UNKNOWN INDICATION
  4. MECLOMEN [Concomitant]
     Indication: PRODUCT USED FOR UNKNOWN INDICATION
  5. HORMONE REPLACEMENT [Concomitant]
     Indication: PRODUCT USED FOR UNKNOWN INDICATION
  6. HUMIRA [Suspect]
     Indication: PSORIATIC ARTHROPATHY
     Dates: start: 20080101
  7. CARDIZEM [Concomitant]
     Indication: PRODUCT USED FOR UNKNOWN INDICATION
     Dosage: 300 MG IN THE AM, 240 IN THE PM

REACTIONS (5)
  - HYPOTENSION [None]
  - FATIGUE [None]
  - PSORIATIC ARTHROPATHY [None]
  - ALOPECIA [None]
  - PAIN [None]
